FAERS Safety Report 25546677 (Version 1)
Quarter: 2025Q3

REPORT INFORMATION
  Report Type: Spontaneous
  Country: US (occurrence: US)
  Receive Date: 20250713
  Receipt Date: 20250713
  Transmission Date: 20251021
  Serious: No
  Sender: TEVA
  Company Number: US-TEVA-VS-3347957

PATIENT
  Age: 64 Year
  Sex: Male

DRUGS (2)
  1. AMOXICILLIN [Suspect]
     Active Substance: AMOXICILLIN
     Indication: Product used for unknown indication
     Route: 065
  2. DUPIXENT [Suspect]
     Active Substance: DUPILUMAB
     Indication: Chronic obstructive pulmonary disease
     Route: 065
     Dates: start: 202504

REACTIONS (4)
  - Dyspnoea [Unknown]
  - Oxygen therapy [Unknown]
  - Drug hypersensitivity [Unknown]
  - Dental operation [Unknown]

NARRATIVE: CASE EVENT DATE: 20250101
